FAERS Safety Report 4359224-4 (Version None)
Quarter: 2004Q2

REPORT INFORMATION
  Report Type: 
  Country: None (occurrence: None)
  Receive Date: 20040517
  Receipt Date: 20040517
  Transmission Date: 20050107
  Serious: Yes (Other)
  Sender: FDA-Public Use
  Company Number: None

PATIENT
  Age: 36 Year
  Sex: Female
  Weight: 60.3284 kg

DRUGS (1)
  1. COLDEEZE COLD REMEDY NASAL ZINCUM GLUCONICUM X 1 3.36% THE QUIQLEY COR [Suspect]
     Indication: NASOPHARYNGITIS
     Dosage: 1 SPRAY EVERY 2-3 NASAL
     Route: 045
     Dates: start: 20040315, end: 20040315

REACTIONS (5)
  - BURNING SENSATION MUCOSAL [None]
  - CRYING [None]
  - FEELING ABNORMAL [None]
  - SELF-MEDICATION [None]
  - SINUS PAIN [None]
